FAERS Safety Report 11635377 (Version 1)
Quarter: 2015Q4

REPORT INFORMATION
  Report Type: Spontaneous
  Country: US (occurrence: US)
  Receive Date: 20151016
  Receipt Date: 20151016
  Transmission Date: 20160304
  Serious: Yes (Other)
  Sender: FDA-Public Use
  Company Number: US-HOSPIRA-3040166

PATIENT
  Sex: Female

DRUGS (2)
  1. DILANTIN [Suspect]
     Active Substance: PHENYTOIN
     Indication: SEIZURE
  2. PHENYTOIN. [Suspect]
     Active Substance: PHENYTOIN
     Indication: SEIZURE

REACTIONS (5)
  - Tooth loss [Unknown]
  - Drug ineffective [Unknown]
  - Mental disorder [Unknown]
  - Gingivitis [Unknown]
  - Tooth disorder [Unknown]
